FAERS Safety Report 25154747 (Version 1)
Quarter: 2025Q2

REPORT INFORMATION
  Report Type: Spontaneous
  Country: US (occurrence: None)
  Receive Date: 20250402
  Receipt Date: 20250402
  Transmission Date: 20250717
  Serious: No
  Sender: FDA-CTU
  Company Number: None

PATIENT
  Age: 65 Year
  Sex: Female
  Weight: 113.4 kg

DRUGS (17)
  1. BUPROPION [Suspect]
     Active Substance: BUPROPION
     Indication: Depression
     Dosage: FREQUENCY : DAILY;?
     Route: 048
     Dates: start: 20250206, end: 20250215
  2. MOUNJARO [Concomitant]
     Active Substance: TIRZEPATIDE
  3. Abuterol HFA inhaler [Concomitant]
  4. FUROSEMIDE [Concomitant]
     Active Substance: FUROSEMIDE
  5. Progabalin [Concomitant]
  6. CITALOPRAM [Concomitant]
     Active Substance: CITALOPRAM
  7. DILTIAZEM [Concomitant]
     Active Substance: DILTIAZEM
  8. CPAP w/air [Concomitant]
  9. Brestri [Concomitant]
  10. FLUTICASONE [Concomitant]
     Active Substance: FLUTICASONE
  11. ROSUVASTATIN [Concomitant]
     Active Substance: ROSUVASTATIN
  12. Naltroxone [Concomitant]
  13. CYCLOBENZAPRINE [Concomitant]
     Active Substance: CYCLOBENZAPRINE
  14. OMEPRAZOLE [Concomitant]
     Active Substance: OMEPRAZOLE
  15. PROPRANOLOL [Concomitant]
     Active Substance: PROPRANOLOL HYDROCHLORIDE
  16. B-12 shots [Concomitant]
  17. VITAMIN D3 [Concomitant]
     Active Substance: CHOLECALCIFEROL

REACTIONS (7)
  - Dyskinesia [None]
  - Confusional state [None]
  - Aphasia [None]
  - Dysphemia [None]
  - Speech disorder [None]
  - Gait disturbance [None]
  - Visual impairment [None]
